FAERS Safety Report 9082705 (Version 1)
Quarter: 2013Q1

REPORT INFORMATION
  Report Type: Spontaneous
  Country: PT (occurrence: PT)
  Receive Date: 20130131
  Receipt Date: 20130131
  Transmission Date: 20140127
  Serious: Yes (Other)
  Sender: FDA-Public Use
  Company Number: PT-009507513-1301PRT013621

PATIENT
  Age: 66 Year
  Sex: Female

DRUGS (2)
  1. IVEMEND [Suspect]
     Indication: VOMITING
     Route: 042
  2. DACARBAZINE [Concomitant]
     Indication: MALIGNANT MELANOMA

REACTIONS (3)
  - Dyspnoea [Recovered/Resolved]
  - Flushing [Recovered/Resolved]
  - Oxygen saturation decreased [Recovered/Resolved]
